FAERS Safety Report 18329184 (Version 1)
Quarter: 2020Q3

REPORT INFORMATION
  Report Type: Spontaneous
  Country: US (occurrence: US)
  Receive Date: 20200929
  Receipt Date: 20200929
  Transmission Date: 20201103
  Serious: No
  Sender: FDA-Public Use
  Company Number: None

PATIENT
  Age: 22 Year
  Sex: Male

DRUGS (1)
  1. REMICADE [Suspect]
     Active Substance: INFLIXIMAB
     Indication: CROHN^S DISEASE
     Dosage: ?          OTHER ROUTE:IV ON WEEK 0,2,4 WEEKS?
     Dates: start: 20200914, end: 20200914

REACTIONS (6)
  - Throat irritation [None]
  - Hyperhidrosis [None]
  - Flushing [None]
  - Dyspnoea [None]
  - Infusion related reaction [None]
  - Wheezing [None]

NARRATIVE: CASE EVENT DATE: 20200914
